FAERS Safety Report 24116243 (Version 1)
Quarter: 2024Q3

REPORT INFORMATION
  Report Type: Spontaneous
  Country: TW (occurrence: TW)
  Receive Date: 20240722
  Receipt Date: 20240722
  Transmission Date: 20241016
  Serious: Yes (Hospitalization, Other)
  Sender: MSN LABORATORIES
  Company Number: TW-MSNLABS-2024MSNLIT01599

PATIENT

DRUGS (3)
  1. LACOSAMIDE [Suspect]
     Active Substance: LACOSAMIDE
     Indication: Status epilepticus
     Dosage: SINGLE IV LOADING DOSE OF 200 MG IN 100 ML OF NORMAL SALINE
     Route: 042
  2. SODIUM CHLORIDE [Suspect]
     Active Substance: SODIUM CHLORIDE
     Indication: Status epilepticus
     Dosage: 100 ML OF NORMAL SALINE, INFUSED AT A RATE OF 200 ML/H OVER 30 MIN
     Route: 042
  3. LORAZEPAM [Concomitant]
     Active Substance: LORAZEPAM
     Indication: Status epilepticus
     Route: 042

REACTIONS (1)
  - Brugada syndrome [Unknown]
